FAERS Safety Report 9208792 (Version 2)
Quarter: 2013Q1

REPORT INFORMATION
  Report Type: Spontaneous
  Country: DE (occurrence: None)
  Receive Date: 20130213
  Receipt Date: 20130220
  Transmission Date: 20140127
  Serious: Yes (Hospitalization)
  Sender: FDA-Public Use
  Company Number: TPA2013A01316

PATIENT
  Age: 59 Year
  Sex: Male

DRUGS (5)
  1. ADENURIC (FEBUXOSTAT) [Suspect]
     Dosage: (80 MG, 1 IN 1 D)
     Route: 048
  2. OMEPRAZOL (OMEPRAZOLE) [Concomitant]
  3. MAXALT (RIZATRIPTAN) [Concomitant]
  4. BISOPROLOL [Concomitant]
  5. PANTOPRAZOL [Concomitant]

REACTIONS (2)
  - Atrioventricular block second degree [None]
  - Atrioventricular block complete [None]
